FAERS Safety Report 4891152-8 (Version None)
Quarter: 2006Q1

REPORT INFORMATION
  Report Type: 
  Country: None (occurrence: None)
  Receive Date: 20060125
  Receipt Date: 20051005
  Transmission Date: 20060701
  Serious: Yes (Other)
  Sender: FDA-Public Use
  Company Number: US-MERCK-0510USA05602

PATIENT
  Age: 46 Year
  Sex: Female

DRUGS (5)
  1. VIOXX [Suspect]
     Indication: OSTEOARTHRITIS
     Route: 048
     Dates: start: 19990101, end: 20040901
  2. XANAX [Concomitant]
     Route: 065
  3. OXYCONTIN [Concomitant]
     Route: 065
  4. PHENERGAN TABLETS/SUPPOSITORIES [Concomitant]
     Route: 065
  5. BENTYL [Concomitant]
     Route: 065

REACTIONS (6)
  - HAEMANGIOMA [None]
  - HEADACHE [None]
  - INTERVERTEBRAL DISC DEGENERATION [None]
  - INTRACRANIAL ANEURYSM [None]
  - NEUROPATHY PERIPHERAL [None]
  - POLYNEUROPATHY [None]
